FAERS Safety Report 17802774 (Version 3)
Quarter: 2020Q2

REPORT INFORMATION
  Report Type: Spontaneous
  Country: GB (occurrence: GB)
  Receive Date: 20200519
  Receipt Date: 20200602
  Transmission Date: 20200714
  Serious: Yes (Other)
  Sender: FDA-Public Use
  Company Number: GB-BAUSCH-BL-2020-014301

PATIENT
  Age: 57 Year
  Sex: Male
  Weight: 90 kg

DRUGS (17)
  1. DEXAMETHASONE. [Suspect]
     Active Substance: DEXAMETHASONE
     Indication: PLASMA CELL MYELOMA
     Route: 065
     Dates: start: 20200404
  2. POMALIDOMIDE [Suspect]
     Active Substance: POMALIDOMIDE
     Indication: PLASMA CELL MYELOMA
     Route: 065
     Dates: start: 20200228, end: 20200314
  3. LANSOPRAZOLE. [Concomitant]
     Active Substance: LANSOPRAZOLE
     Indication: DYSPEPSIA
     Dates: start: 2015
  4. TENOFOVIR [Concomitant]
     Active Substance: TENOFOVIR
     Indication: CHRONIC HEPATITIS B
     Dates: start: 20191101
  5. GABAPENTIN. [Concomitant]
     Active Substance: GABAPENTIN
     Indication: NEURALGIA
     Dates: start: 2015
  6. PENICILLIN V [Concomitant]
     Active Substance: PENICILLIN V
     Indication: PROPHYLAXIS
     Dates: start: 201704
  7. AMITRIPTYLINE [Concomitant]
     Active Substance: AMITRIPTYLINE
     Indication: NEURALGIA
     Dates: start: 2015
  8. SEPTRIN [Concomitant]
     Active Substance: SULFAMETHOXAZOLE\TRIMETHOPRIM
     Indication: PRODUCT USED FOR UNKNOWN INDICATION
     Dosage: 960 MG OD M/W/F
     Route: 065
  9. ACYCLOVIR. [Concomitant]
     Active Substance: ACYCLOVIR
     Indication: PRODUCT USED FOR UNKNOWN INDICATION
     Route: 065
  10. POMALIDOMIDE [Suspect]
     Active Substance: POMALIDOMIDE
     Route: 065
     Dates: start: 20200404
  11. CITALOPRAM [Concomitant]
     Active Substance: CITALOPRAM HYDROBROMIDE
     Indication: DEPRESSION
     Dates: start: 2015
  12. APIXABAN [Concomitant]
     Active Substance: APIXABAN
     Indication: PRODUCT USED FOR UNKNOWN INDICATION
     Route: 065
  13. FLUCONAZOLE. [Concomitant]
     Active Substance: FLUCONAZOLE
     Indication: PRODUCT USED FOR UNKNOWN INDICATION
     Route: 065
  14. ISATUXIMAB [Suspect]
     Active Substance: ISATUXIMAB
     Indication: PLASMA CELL MYELOMA
     Route: 065
     Dates: start: 20200228, end: 20200228
  15. ISATUXIMAB [Suspect]
     Active Substance: ISATUXIMAB
     Route: 065
     Dates: start: 20200314, end: 20200314
  16. OMEPRAZOLE. [Concomitant]
     Active Substance: OMEPRAZOLE
     Indication: PRODUCT USED FOR UNKNOWN INDICATION
     Route: 065
  17. DEXAMETHASONE. [Suspect]
     Active Substance: DEXAMETHASONE
     Indication: PLASMA CELL MYELOMA
     Route: 065
     Dates: start: 20200228, end: 20200314

REACTIONS (5)
  - Rhinitis [Recovered/Resolved]
  - Pyrexia [Recovered/Resolved]
  - Productive cough [Recovered/Resolved]
  - Parainfluenzae virus infection [Recovered/Resolved]
  - Upper respiratory tract infection [Recovered/Resolved]

NARRATIVE: CASE EVENT DATE: 20200314
